FAERS Safety Report 4426262-2 (Version None)
Quarter: 2004Q3

REPORT INFORMATION
  Report Type: 
  Country: None (occurrence: None)
  Receive Date: 20040811
  Receipt Date: 20040623
  Transmission Date: 20050211
  Serious: Yes (Other)
  Sender: FDA-Public Use
  Company Number: STA-AE-04-016

PATIENT
  Sex: Male
  Weight: 4.6 kg

DRUGS (4)
  1. FRUSEMIDE [Suspect]
     Indication: HEART DISEASE CONGENITAL
     Dosage: 1MG/KG PER DAY
  2. DIAZOXIDE [Suspect]
     Indication: HEART DISEASE CONGENITAL
     Dosage: 5MG/KG/DAY
  3. SPIRONOLACTONE [Suspect]
     Indication: HEART DISEASE CONGENITAL
     Dosage: 0.4MG/KG PER DAY
  4. ASPIRIN [Suspect]
     Indication: HEART DISEASE CONGENITAL
     Dosage: 5MG/KG PER DAY

REACTIONS (4)
  - DRUG INTERACTION [None]
  - HYPERGLYCAEMIA [None]
  - HYPOGLYCAEMIA NEONATAL [None]
  - NEONATAL DISORDER [None]
